FAERS Safety Report 5452149-2 (Version None)
Quarter: 2007Q3

REPORT INFORMATION
  Report Type: 
  Country: None (occurrence: None)
  Receive Date: 20070912
  Receipt Date: 20070801
  Transmission Date: 20080115
  Serious: Yes (Hospitalization)
  Sender: FDA-Public Use
  Company Number: 2007US001781

PATIENT
  Age: 76 Year
  Sex: Female
  Weight: 88.4 kg

DRUGS (1)
  1. AMEVIVE FOR IM(AMEVIVE FOR IM)(ALEFACEPTS0 INJECTION [Suspect]
     Indication: PSORIASIS
     Dosage: WEEKLY, INTRAMUSCULAR
     Route: 030
     Dates: start: 20031119

REACTIONS (1)
  - INTESTINAL OBSTRUCTION [None]
